FAERS Safety Report 8500140-1 (Version None)
Quarter: 2012Q3

REPORT INFORMATION
  Report Type: 
  Country: None (occurrence: None)
  Receive Date: 20120710
  Receipt Date: 20120703
  Transmission Date: 20120928
  Serious: Yes (Other)
  Sender: FDA-Public Use
  Company Number: GR-PFIZER INC-2012146043

PATIENT
  Age: 51 Year
  Sex: Female

DRUGS (1)
  1. VFEND [Suspect]
     Indication: ANTIBIOTIC PROPHYLAXIS
     Dosage: 200 MG, 2X/DAY
     Route: 048

REACTIONS (2)
  - DIARRHOEA [None]
  - CANDIDIASIS [None]
